FAERS Safety Report 7030584-9 (Version None)
Quarter: 2010Q4

REPORT INFORMATION
  Report Type: 
  Country: None (occurrence: None)
  Receive Date: 20101006
  Receipt Date: 20101004
  Transmission Date: 20110411
  Serious: Yes (Hospitalization)
  Sender: FDA-Public Use
  Company Number: US-GILEAD-2010-0032345

PATIENT
  Sex: Female
  Weight: 58.566 kg

DRUGS (22)
  1. LETAIRIS [Suspect]
     Indication: PULMONARY ARTERIAL HYPERTENSION
     Route: 048
     Dates: start: 20100719
  2. FUROSEMIDE [Concomitant]
  3. METOLAZONE [Concomitant]
  4. ASPIRIN [Concomitant]
  5. COREG [Concomitant]
  6. SIMVASTATIN [Concomitant]
  7. AZATHIOPRINE [Concomitant]
  8. BUMETANIDE [Concomitant]
  9. PLAQUENIL [Concomitant]
  10. CLOBETASOL PROPIONATE [Concomitant]
  11. CYMBALTA [Concomitant]
  12. NOVOLIN R [Concomitant]
  13. SYNTHROID [Concomitant]
  14. RECLAST [Concomitant]
  15. KLOR-CON [Concomitant]
  16. LANTUS [Concomitant]
  17. PREVACID [Concomitant]
  18. LOVAZA [Concomitant]
  19. VITAMIN D [Concomitant]
  20. PREDNISONE [Concomitant]
  21. CALCIUM [Concomitant]
  22. MAGNESIUM [Concomitant]

REACTIONS (2)
  - ANAEMIA [None]
  - BLOOD TEST ABNORMAL [None]
